FAERS Safety Report 16325564 (Version 1)
Quarter: 2019Q2

REPORT INFORMATION
  Report Type: Report from Study
  Country: IT (occurrence: IT)
  Receive Date: 20190517
  Receipt Date: 20190517
  Transmission Date: 20190711
  Serious: Yes (Hospitalization)
  Sender: FDA-Public Use
  Company Number: IT-TEVA-2019-IT-1050692

PATIENT
  Age: 90 Year
  Sex: Female

DRUGS (2)
  1. ALENDRONIC ACID [Suspect]
     Active Substance: ALENDRONIC ACID
     Indication: OSTEOPOROSIS
     Route: 065
     Dates: start: 20170101, end: 20190102
  2. DIBASE 25.000 U.I./2,5 ML SOLUZIONE ORALE [Concomitant]

REACTIONS (3)
  - Oesophagitis haemorrhagic [Unknown]
  - Normocytic anaemia [Unknown]
  - Melaena [Unknown]

NARRATIVE: CASE EVENT DATE: 20190102
